FAERS Safety Report 24242100 (Version 1)
Quarter: 2024Q3

REPORT INFORMATION
  Report Type: Report from Study
  Country: PK (occurrence: PK)
  Receive Date: 20240823
  Receipt Date: 20240823
  Transmission Date: 20241017
  Serious: Yes (Death, Hospitalization)
  Sender: ADAPTIS PHARMA INDIA
  Company Number: PK-Adaptis Pharma Private Limited-2160778

PATIENT
  Age: 86 Year
  Sex: Male

DRUGS (3)
  1. PREGABALIN [Suspect]
     Active Substance: PREGABALIN
     Indication: Postoperative analgesia
     Route: 048
  2. ACETAMINOPHEN [Suspect]
     Active Substance: ACETAMINOPHEN
     Route: 048
  3. TRAMADOL [Suspect]
     Active Substance: TRAMADOL\TRAMADOL HYDROCHLORIDE
     Route: 048

REACTIONS (2)
  - Intestinal obstruction [Fatal]
  - Off label use [Unknown]
